FAERS Safety Report 8349019-9 (Version None)
Quarter: 2012Q2

REPORT INFORMATION
  Report Type: 
  Country: None (occurrence: None)
  Receive Date: 20120510
  Receipt Date: 20120430
  Transmission Date: 20120825
  Serious: Yes (Hospitalization, Other)
  Sender: FDA-Public Use
  Company Number: US-JNJFOC-20120402304

PATIENT
  Sex: Female
  Weight: 42.64 kg

DRUGS (9)
  1. LEFLUNOMIDE [Concomitant]
     Indication: ARTHRITIS
     Route: 048
     Dates: start: 20111001
  2. SYNTHROID [Concomitant]
     Indication: THYROID DISORDER
     Route: 048
     Dates: start: 19920101
  3. PREDNISONE TAB [Concomitant]
     Route: 048
     Dates: start: 20120402
  4. VIVELLE [Concomitant]
     Indication: OSTEOPOROSIS
     Route: 062
     Dates: start: 19890201
  5. REMICADE [Suspect]
     Indication: RHEUMATOID ARTHRITIS
     Route: 042
     Dates: start: 20120207
  6. METHOTREXATE [Concomitant]
     Indication: ARTHRITIS
     Route: 048
     Dates: start: 20111001
  7. HYDROCODONE BITARTRATE [Concomitant]
     Indication: PAIN
     Route: 048
     Dates: start: 20111001
  8. CRESTOR [Concomitant]
     Indication: BLOOD CHOLESTEROL INCREASED
     Route: 048
     Dates: start: 20111221
  9. PREDNISONE TAB [Concomitant]
     Indication: ARTHRITIS
     Route: 048
     Dates: start: 20111001

REACTIONS (5)
  - UNRESPONSIVE TO STIMULI [None]
  - ORAL HERPES [None]
  - PAIN [None]
  - NEURALGIA [None]
  - PNEUMONIA [None]
